FAERS Safety Report 20661211 (Version 1)
Quarter: 2022Q2

REPORT INFORMATION
  Report Type: Report from Study
  Country: IL (occurrence: IL)
  Receive Date: 20220401
  Receipt Date: 20220401
  Transmission Date: 20220721
  Serious: Yes (Life-Threatening)
  Sender: FDA-Public Use
  Company Number: IL-ABBVIE-21K-082-3883532-00

PATIENT
  Age: 83 Year
  Sex: Male
  Weight: 59 kg

DRUGS (41)
  1. VENCLEXTA [Suspect]
     Active Substance: VENETOCLAX
     Indication: Acute myeloid leukaemia
     Route: 048
     Dates: start: 20191218, end: 20191219
  2. VENCLEXTA [Suspect]
     Active Substance: VENETOCLAX
     Route: 048
     Dates: start: 20191220, end: 20191221
  3. VENCLEXTA [Suspect]
     Active Substance: VENETOCLAX
     Route: 048
     Dates: start: 20191222, end: 20191223
  4. VENCLEXTA [Suspect]
     Active Substance: VENETOCLAX
     Dosage: INTERRUPTION DUE TO ADVERSE EVENT
     Route: 048
     Dates: start: 20191224, end: 20220324
  5. AZACITIDINE [Suspect]
     Active Substance: AZACITIDINE
     Indication: Acute myeloid leukaemia
     Route: 042
     Dates: start: 20191218, end: 20191225
  6. AZACITIDINE [Suspect]
     Active Substance: AZACITIDINE
     Route: 042
     Dates: start: 20200119, end: 20200125
  7. AZACITIDINE [Suspect]
     Active Substance: AZACITIDINE
     Route: 042
     Dates: start: 20200219, end: 20200225
  8. AZACITIDINE [Suspect]
     Active Substance: AZACITIDINE
     Route: 042
     Dates: start: 20200315, end: 20200321
  9. AZACITIDINE [Suspect]
     Active Substance: AZACITIDINE
     Route: 042
     Dates: start: 20200426, end: 20200502
  10. AZACITIDINE [Suspect]
     Active Substance: AZACITIDINE
     Route: 042
     Dates: start: 20200524, end: 20200601
  11. AZACITIDINE [Suspect]
     Active Substance: AZACITIDINE
     Route: 042
     Dates: start: 20200626, end: 20200706
  12. AZACITIDINE [Suspect]
     Active Substance: AZACITIDINE
     Route: 042
     Dates: start: 20200906, end: 20200914
  13. AZACITIDINE [Suspect]
     Active Substance: AZACITIDINE
     Route: 042
     Dates: start: 20201004, end: 20201012
  14. AZACITIDINE [Suspect]
     Active Substance: AZACITIDINE
     Route: 042
     Dates: start: 20201101, end: 20201109
  15. AZACITIDINE [Suspect]
     Active Substance: AZACITIDINE
     Dosage: 120 MG, CYCLE 11
     Route: 042
     Dates: start: 20201227, end: 20210104
  16. AZACITIDINE [Suspect]
     Active Substance: AZACITIDINE
     Dosage: 120 MG, CYCLE 12
     Route: 042
     Dates: start: 20210121, end: 20210201
  17. AZACITIDINE [Suspect]
     Active Substance: AZACITIDINE
     Dosage: 120 MG, CYCLE 13
     Route: 042
     Dates: start: 20210221, end: 20210225
  18. AZACITIDINE [Suspect]
     Active Substance: AZACITIDINE
     Dosage: 120 MG, CYCLE 14
     Route: 042
     Dates: start: 20210321, end: 20210331
  19. AZACITIDINE [Suspect]
     Active Substance: AZACITIDINE
     Dosage: 120 MG, CYCLE 15
     Route: 042
     Dates: start: 20210418, end: 20210426
  20. AZACITIDINE [Suspect]
     Active Substance: AZACITIDINE
     Dosage: 120 MG, CYCLE 16
     Route: 042
     Dates: start: 20210523, end: 20210531
  21. AZACITIDINE [Suspect]
     Active Substance: AZACITIDINE
     Dosage: 120 MG, CYCLE 17
     Route: 042
     Dates: start: 20210718, end: 20210726
  22. AZACITIDINE [Suspect]
     Active Substance: AZACITIDINE
     Dosage: 120 MG, CYCLE 18
     Route: 042
     Dates: start: 20210920, end: 20210926
  23. AZACITIDINE [Suspect]
     Active Substance: AZACITIDINE
     Dosage: 120 MG, CYCLE 19
     Route: 042
     Dates: start: 20211014, end: 20211021
  24. AZACITIDINE [Suspect]
     Active Substance: AZACITIDINE
     Dosage: 120 MG, CYCLE 20
     Route: 042
     Dates: start: 20211104, end: 20211111
  25. AZACITIDINE [Suspect]
     Active Substance: AZACITIDINE
     Dosage: 120 MG, CYCLE 21
     Route: 042
     Dates: start: 20211125, end: 20211129
  26. AZACITIDINE [Suspect]
     Active Substance: AZACITIDINE
     Dosage: 120 MG, CYCLE 22
     Route: 042
     Dates: start: 20211216, end: 20211222
  27. AZACITIDINE [Suspect]
     Active Substance: AZACITIDINE
     Dosage: 120 MG, CYCLE 23
     Route: 042
     Dates: start: 20220106, end: 20220112
  28. AZACITIDINE [Suspect]
     Active Substance: AZACITIDINE
     Dosage: 120 MG, CYCLE 24
     Route: 042
     Dates: start: 20220127, end: 20220202
  29. MABTHERA [Suspect]
     Active Substance: RITUXIMAB
     Indication: Acute myeloid leukaemia
     Dosage: RELAPSE, THE TREATMENT OF A SECOND -LINE
     Route: 042
     Dates: start: 20210930, end: 20210930
  30. MABTHERA [Suspect]
     Active Substance: RITUXIMAB
     Dosage: RELAPSE ,SECOND LINE
     Route: 042
     Dates: start: 20211014, end: 20211014
  31. MABTHERA [Suspect]
     Active Substance: RITUXIMAB
     Dosage: RELAPSE,SECOND LINE
     Route: 042
     Dates: start: 20211104, end: 20211104
  32. MABTHERA [Suspect]
     Active Substance: RITUXIMAB
     Dosage: RELAPSE,SECOND LINE
     Route: 042
     Dates: start: 20211216, end: 20211216
  33. MABTHERA [Suspect]
     Active Substance: RITUXIMAB
     Dosage: RELAPSE,SECOND LINE
     Route: 042
     Dates: start: 20220106, end: 20220106
  34. ALLOPURINOL [Concomitant]
     Active Substance: ALLOPURINOL
     Indication: Prophylaxis
     Dates: start: 20191217, end: 20191224
  35. NYSTATIN [Concomitant]
     Active Substance: NYSTATIN
     Indication: Product used for unknown indication
     Dates: start: 20191215, end: 20220324
  36. PFIZER-BIONTECH COVID-19 VACCINE [Concomitant]
     Active Substance: TOZINAMERAN
     Indication: Immunisation
     Dosage: PFIZER VACCINATION
     Route: 030
     Dates: start: 20210107, end: 20210107
  37. PFIZER-BIONTECH COVID-19 VACCINE [Concomitant]
     Active Substance: TOZINAMERAN
     Route: 030
     Dates: start: 20210209, end: 20210209
  38. GRANULOCYTE COLONY-STIMULATING FACTOR NOS [Concomitant]
     Active Substance: GRANULOCYTE COLONY-STIMULATING FACTOR NOS
     Indication: Neutropenia
     Dates: start: 20200426
  39. VASOPID [Concomitant]
     Indication: Hypertension
     Dates: start: 20161117, end: 20210406
  40. DIPROSPAN [Concomitant]
     Active Substance: BETAMETHASONE DIPROPIONATE\BETAMETHASONE SODIUM PHOSPHATE
     Indication: Pain
     Dates: start: 20210422, end: 202108
  41. LACRIMOL [Concomitant]
     Indication: Eye disorder prophylaxis
     Dates: start: 20220222

REACTIONS (5)
  - COVID-19 [Not Recovered/Not Resolved]
  - Night sweats [Recovered/Resolved]
  - Neutropenia [Unknown]
  - Asthenia [Not Recovered/Not Resolved]
  - Arthralgia [Recovered/Resolved]

NARRATIVE: CASE EVENT DATE: 20210422
